FAERS Safety Report 11317336 (Version 2)
Quarter: 2016Q3

REPORT INFORMATION
  Report Type: Spontaneous
  Country: DK (occurrence: DK)
  Receive Date: 20150728
  Receipt Date: 20160810
  Transmission Date: 20161109
  Serious: Yes (Hospitalization)
  Sender: FDA-Public Use
  Company Number: PHHY2015DK086608

PATIENT
  Age: 86 Year
  Sex: Male
  Weight: 87.9 kg

DRUGS (8)
  1. OMNIC [Suspect]
     Active Substance: TAMSULOSIN HYDROCHLORIDE
     Indication: PRODUCT USED FOR UNKNOWN INDICATION
     Dosage: STRENGTH: 0,4 MG
     Route: 048
  2. ANCOZAN [Suspect]
     Active Substance: LOSARTAN POTASSIUM
     Indication: HYPERTENSION
     Dosage: STRENGTH: 50 MG
     Route: 048
     Dates: start: 20140512
  3. ATORVASTATIN CALCIUM. [Suspect]
     Active Substance: ATORVASTATIN CALCIUM
     Indication: PRODUCT USED FOR UNKNOWN INDICATION
     Dosage: STRENGTH: 40 MG
     Route: 048
     Dates: end: 20150609
  4. JANUVIA [Suspect]
     Active Substance: SITAGLIPTIN PHOSPHATE
     Indication: TYPE 2 DIABETES MELLITUS
     Route: 048
     Dates: start: 20150501, end: 20150609
  5. HJERTEMAGNYL                       /00228701/ [Suspect]
     Active Substance: ASPIRIN\MAGNESIUM OXIDE
     Indication: ANTICOAGULANT THERAPY
     Dosage: STRENGTH: 75 MG
     Route: 048
  6. METFORMIN [Suspect]
     Active Substance: METFORMIN HYDROCHLORIDE
     Indication: TYPE 2 DIABETES MELLITUS
     Dosage: STRENGTH: 500 MG
     Route: 048
     Dates: start: 20150501
  7. PANODIL [Suspect]
     Active Substance: ACETAMINOPHEN
     Indication: PAIN
     Dosage: STRENGTH: 500 MG
     Route: 048
  8. OMNIC [Suspect]
     Active Substance: TAMSULOSIN HYDROCHLORIDE
     Dosage: STYRKE: 0,4 MG
     Route: 048

REACTIONS (1)
  - Vasculitic rash [Recovered/Resolved]

NARRATIVE: CASE EVENT DATE: 20150608
